FAERS Safety Report 9052075 (Version 1)
Quarter: 2013Q1

REPORT INFORMATION
  Report Type: Spontaneous
  Country: US (occurrence: None)
  Receive Date: 20130131
  Receipt Date: 20130131
  Transmission Date: 20140127
  Serious: Yes (Life-Threatening)
  Sender: FDA-Public Use
  Company Number: None

PATIENT
  Age: 81 Year
  Sex: Male
  Weight: 85.6 kg

DRUGS (7)
  1. COUMADIN [Suspect]
     Dosage: 2MG MWFSUN PO?CHRONIC
  2. ALLOPURINOL [Concomitant]
  3. MIRAPEX [Concomitant]
  4. LASIX [Concomitant]
  5. SINEMET [Concomitant]
  6. ZANTAC [Concomitant]
  7. CALCIUM VIT D [Concomitant]

REACTIONS (5)
  - Fall [None]
  - Blister [None]
  - Haemarthrosis [None]
  - Joint injury [None]
  - Dermatitis bullous [None]
